FAERS Safety Report 6282664-3 (Version None)
Quarter: 2009Q3

REPORT INFORMATION
  Report Type: 
  Country: None (occurrence: None)
  Receive Date: 20090724
  Receipt Date: 20090715
  Transmission Date: 20100115
  Serious: Yes (Other)
  Sender: FDA-Public Use
  Company Number: PHHY2009CA29603

PATIENT
  Sex: Male

DRUGS (1)
  1. DIOVAN [Suspect]
     Dosage: 1 TABLET (160 MG)/DAY
     Route: 048

REACTIONS (4)
  - ANGIOPLASTY [None]
  - DIZZINESS [None]
  - FALL [None]
  - MYOCARDIAL INFARCTION [None]
